FAERS Safety Report 8894738 (Version 1)
Quarter: 2012Q4

REPORT INFORMATION
  Report Type: 
  Country: CL (occurrence: CL)
  Receive Date: 20121107
  Receipt Date: 20121107
  Transmission Date: 20130627
  Serious: Yes (Hospitalization)
  Sender: FDA-Public Use
  Company Number: CL-B.I. PHARMACEUTICALS,INC./RIDGEFIELD-2012-EU-05464GD

PATIENT
  Age: 65 Year
  Sex: Female

DRUGS (2)
  1. MELOXICAM [Suspect]
     Indication: PAIN
     Dosage: 15 mg
  2. MELOXICAM [Suspect]
     Indication: TENDONITIS

REACTIONS (9)
  - Renal tubular necrosis [Recovered/Resolved]
  - Nephrotic syndrome [Recovered/Resolved]
  - Renal failure [Recovered/Resolved]
  - Tubulointerstitial nephritis [Recovered/Resolved]
  - Metabolic acidosis [Recovered/Resolved]
  - Anaemia [Unknown]
  - Back pain [Unknown]
  - Nausea [Unknown]
  - Vomiting [Unknown]
